FAERS Safety Report 21345523 (Version 1)
Quarter: 2022Q3

REPORT INFORMATION
  Report Type: Spontaneous
  Country: US (occurrence: US)
  Receive Date: 20220916
  Receipt Date: 20220916
  Transmission Date: 20221027
  Serious: No
  Sender: FDA-Public Use
  Company Number: US-REGENERON PHARMACEUTICALS, INC.-2021-71379

PATIENT
  Age: 81 Year
  Sex: Male

DRUGS (2)
  1. PRALUENT [Suspect]
     Active Substance: ALIROCUMAB
     Indication: Hypercholesterolaemia
     Dosage: 75 MG, SINGLE
     Route: 065
     Dates: start: 20210719
  2. TYLENOL                            /00020001/ [Concomitant]
     Indication: Product used for unknown indication
     Dosage: 1 OR 2 TABLETS WHEN NEEDED
     Route: 065

REACTIONS (6)
  - Feeling abnormal [Recovered/Resolved]
  - Oral disorder [Unknown]
  - Back pain [Unknown]
  - Gait disturbance [Recovered/Resolved]
  - Arthralgia [Unknown]
  - Pain in extremity [Unknown]

NARRATIVE: CASE EVENT DATE: 20210719
